FAERS Safety Report 6157807-2 (Version None)
Quarter: 2009Q2

REPORT INFORMATION
  Report Type: 
  Country: None (occurrence: None)
  Receive Date: 20090414
  Receipt Date: 20081111
  Transmission Date: 20091009
  Serious: Yes (Hospitalization, Other)
  Sender: FDA-Public Use
  Company Number: FRVA20080038

PATIENT
  Age: 35 Year
  Sex: Female

DRUGS (2)
  1. MENAMIG (FROVATRIPTAN) [Suspect]
     Indication: MIGRAINE
     Dosage: 2.5 MG, SINGLE DOSE, PER ORAL
     Route: 048
     Dates: start: 20080427, end: 20080427
  2. RELPAX [Suspect]
     Indication: MIGRAINE
     Dosage: SINGLE D0SE PRN, PER ORAL
     Route: 048
     Dates: start: 20080312, end: 20080427

REACTIONS (3)
  - ABORTION SPONTANEOUS [None]
  - DRUG EXPOSURE DURING PREGNANCY [None]
  - INTRA-UTERINE DEATH [None]
